FAERS Safety Report 7597551-8 (Version None)
Quarter: 2011Q3

REPORT INFORMATION
  Report Type: 
  Country: None (occurrence: None)
  Receive Date: 20110708
  Receipt Date: 20110620
  Transmission Date: 20111222
  Serious: No
  Sender: FDA-Public Use
  Company Number: US-B.I. PHARMACEUTICALS,INC./RIDGEFIELD-2011-BP-15868BP

PATIENT
  Sex: Male

DRUGS (8)
  1. ENALAPRIL MALEATE [Concomitant]
     Indication: BLOOD PRESSURE
  2. CARVEDILOL [Concomitant]
     Indication: BLOOD CHOLESTEROL
  3. FELODIPINE [Concomitant]
     Indication: BLOOD PRESSURE
  4. SPIRIVA [Suspect]
     Indication: CHRONIC OBSTRUCTIVE PULMONARY DISEASE
     Dosage: 18 MCG
     Route: 055
     Dates: start: 20110101
  5. FUROSEMIDE [Concomitant]
     Indication: BLOOD PRESSURE
  6. ZETIA [Concomitant]
     Indication: BLOOD CHOLESTEROL
  7. M.V.I. [Concomitant]
     Indication: PROPHYLAXIS
  8. FISH OIL [Concomitant]
     Indication: PROPHYLAXIS

REACTIONS (1)
  - SWELLING FACE [None]
